FAERS Safety Report 7085435-3 (Version None)
Quarter: 2010Q4

REPORT INFORMATION
  Report Type: 
  Country: None (occurrence: None)
  Receive Date: 20101105
  Receipt Date: 20101101
  Transmission Date: 20110411
  Serious: Yes (Other)
  Sender: FDA-Public Use
  Company Number: US-PFIZER INC-2010138938

PATIENT
  Sex: Female
  Weight: 70.295 kg

DRUGS (5)
  1. SERTRALINE HYDROCHLORIDE [Suspect]
     Indication: DEPRESSION
     Dosage: 100 MG, 1X/DAY
     Route: 048
     Dates: end: 20101024
  2. CARVEDILOL [Concomitant]
     Indication: HYPERTENSION
     Dosage: 12.5 MG, 2X/DAY
     Route: 048
  3. LEVOTHYROXINE [Concomitant]
     Indication: THYROID DISORDER
     Dosage: 0.125 MG, 1X/DAY
     Route: 048
  4. METFORMIN [Concomitant]
     Indication: DIABETES MELLITUS
     Dosage: 1000 MG, 2X/DAY
     Route: 048
  5. SITAGLIPTIN PHOSPHATE [Concomitant]
     Indication: DIABETES MELLITUS
     Dosage: 100 MG, 4X/DAY
     Route: 048

REACTIONS (8)
  - DISORIENTATION [None]
  - DIZZINESS [None]
  - DRUG WITHDRAWAL SYNDROME [None]
  - HEADACHE [None]
  - HYPOAESTHESIA [None]
  - MUSCLE SPASMS [None]
  - TENSION [None]
  - TREMOR [None]
